FAERS Safety Report 7266018-9 (Version None)
Quarter: 2011Q1

REPORT INFORMATION
  Report Type: 
  Country: None (occurrence: None)
  Receive Date: 20110131
  Receipt Date: 20110125
  Transmission Date: 20110831
  Serious: Yes (Hospitalization, Other)
  Sender: FDA-Public Use
  Company Number: US-PFIZER INC-2010126128

PATIENT
  Sex: Female

DRUGS (21)
  1. DEPAKOTE [Concomitant]
     Indication: ANXIETY
     Dosage: UNK
     Dates: start: 20050101, end: 20080101
  2. MEDROL [Concomitant]
     Indication: ARTHRITIS
     Dosage: UNK
     Dates: start: 20060101, end: 20080101
  3. ZANTAC [Concomitant]
     Indication: IRRITABLE BOWEL SYNDROME
     Dosage: UNK
     Dates: start: 20050101
  4. SYNTHROID [Concomitant]
     Indication: HYPOTHYROIDISM
     Dosage: UNK
     Dates: start: 20060101, end: 20090101
  5. CYMBALTA [Concomitant]
     Indication: DEPRESSION
  6. PAXIL [Concomitant]
     Indication: ANXIETY
     Dosage: UNK
     Dates: start: 19990101, end: 20090101
  7. LEVOTHYROXINE [Concomitant]
     Indication: HYPOTHYROIDISM
     Dosage: UNK
     Dates: start: 20060101
  8. ZANTAC [Concomitant]
     Indication: DYSPEPSIA
  9. DARVOCET-N 100 [Concomitant]
     Indication: PAIN
     Dosage: UNK
     Dates: start: 20050101, end: 20090101
  10. PROTONIX [Concomitant]
     Indication: IRRITABLE BOWEL SYNDROME
     Dosage: UNK
     Dates: start: 20050101, end: 20090101
  11. NASACORT [Concomitant]
     Indication: SINUSITIS
     Dosage: UNK
     Dates: start: 20050101, end: 20080101
  12. PAXIL [Concomitant]
     Indication: DEPRESSION
  13. PROTONIX [Concomitant]
     Indication: DYSPEPSIA
  14. LIBRAX [Concomitant]
     Indication: IRRITABLE BOWEL SYNDROME
     Dosage: UNK
     Dates: end: 20080101
  15. NASACORT [Concomitant]
     Indication: CHRONIC OBSTRUCTIVE PULMONARY DISEASE
  16. CHANTIX [Suspect]
     Indication: SMOKING CESSATION THERAPY
     Dosage: 1 MG, 1X/DAY
     Dates: start: 20070319, end: 20081003
  17. CYMBALTA [Concomitant]
     Indication: ANXIETY
     Dosage: UNK
     Dates: start: 20020101, end: 20090101
  18. DEPAKOTE [Concomitant]
     Indication: DEPRESSION
  19. ZEBETA [Concomitant]
     Indication: HEADACHE
     Dosage: UNK
     Dates: start: 20060101, end: 20080101
  20. LORTAB [Concomitant]
     Indication: BACK PAIN
     Dosage: UNK
     Dates: start: 20060101, end: 20080101
  21. DEPO-ESTRADIOL [Concomitant]
     Indication: HORMONE REPLACEMENT THERAPY
     Dosage: UNK
     Dates: start: 20050101

REACTIONS (5)
  - ANGER [None]
  - SUICIDE ATTEMPT [None]
  - ANXIETY [None]
  - CONVULSION [None]
  - DEPRESSION [None]
